FAERS Safety Report 4756849-9 (Version None)
Quarter: 2005Q3

REPORT INFORMATION
  Report Type: 
  Country: None (occurrence: None)
  Receive Date: 20050830
  Receipt Date: 20050819
  Transmission Date: 20060218
  Serious: Yes (Life-Threatening)
  Sender: FDA-Public Use
  Company Number: FR-JNJFOC-20050804557

PATIENT
  Age: 53 Year
  Sex: Male
  Weight: 52 kg

DRUGS (5)
  1. DURAGESIC-100 [Suspect]
     Indication: DRUG USE FOR UNKNOWN INDICATION
     Route: 062
  2. TRAMADOL HCL [Suspect]
     Indication: DRUG USE FOR UNKNOWN INDICATION
     Route: 042
  3. PLITICAN [Suspect]
     Indication: VOMITING
     Route: 042
  4. PLITICAN [Suspect]
     Indication: NAUSEA
     Route: 042
  5. NEURONTIN [Suspect]
     Indication: DRUG USE FOR UNKNOWN INDICATION
     Route: 048

REACTIONS (2)
  - CEREBRAL HAEMORRHAGE TRAUMATIC [None]
  - GRAND MAL CONVULSION [None]
